FAERS Safety Report 19499359 (Version 1)
Quarter: 2021Q3

REPORT INFORMATION
  Report Type: Spontaneous
  Country: FR (occurrence: FR)
  Receive Date: 20210706
  Receipt Date: 20210706
  Transmission Date: 20211014
  Serious: Yes (Hospitalization)
  Sender: FDA-Public Use
  Company Number: FR-FRESENIUS KABI-FK202106890

PATIENT
  Age: 4 Week
  Sex: Female
  Weight: 2.8 kg

DRUGS (5)
  1. GLUCOSE 5% (MANUFACTURER UNKNOWN) [Suspect]
     Active Substance: DEXTROSE
     Indication: FLUID REPLACEMENT
     Route: 042
  2. BETAMETHASONE. [Concomitant]
     Active Substance: BETAMETHASONE
  3. SODIUM CHLORIDE (MANUFACTURER UNKNOWN) [Suspect]
     Active Substance: SODIUM CHLORIDE
     Indication: FLUID REPLACEMENT
     Route: 042
  4. POTASSIUM [Suspect]
     Active Substance: POTASSIUM
     Indication: FLUID REPLACEMENT
     Route: 042
  5. CALCIUM [Suspect]
     Active Substance: CALCIUM
     Indication: FLUID REPLACEMENT
     Route: 042

REACTIONS (2)
  - Hyponatraemia [Recovered/Resolved]
  - Hyponatraemic encephalopathy [Recovered/Resolved]
